FAERS Safety Report 5689114-6 (Version None)
Quarter: 2008Q1

REPORT INFORMATION
  Report Type: 
  Country: None (occurrence: None)
  Receive Date: 20080331
  Receipt Date: 19830701
  Transmission Date: 20080703
  Serious: Yes (Death)
  Sender: FDA-Public Use
  Company Number: NL-ROCHE-830102607001

PATIENT

DRUGS (5)
  1. VALIUM [Suspect]
     Indication: SEDATION
     Route: 042
  2. VALIUM [Suspect]
     Route: 042
  3. ALTHESIN [Suspect]
     Indication: INDUCTION OF ANAESTHESIA
     Route: 065
  4. MARCAINE [Suspect]
     Indication: INDUCTION OF ANAESTHESIA
     Route: 065
  5. MORPHINE [Suspect]
     Indication: SEDATION
     Route: 065

REACTIONS (1)
  - DEATH [None]
